FAERS Safety Report 19064892 (Version 2)
Quarter: 2021Q3

REPORT INFORMATION
  Report Type: Other
  Country: US (occurrence: US)
  Receive Date: 20210327
  Receipt Date: 20210727
  Transmission Date: 20211014
  Serious: Yes (Other)
  Sender: FDA-Public Use
  Company Number: US-ROCHE-2797758

PATIENT

DRUGS (1)
  1. ATEZOLIZUMAB. [Suspect]
     Active Substance: ATEZOLIZUMAB
     Indication: BLADDER TRANSITIONAL CELL CARCINOMA
     Route: 042

REACTIONS (2)
  - Diarrhoea [Unknown]
  - Anal incontinence [Unknown]
